FAERS Safety Report 14881884 (Version 8)
Quarter: 2021Q2

REPORT INFORMATION
  Report Type: Report from Study
  Country: TW (occurrence: TW)
  Receive Date: 20180511
  Receipt Date: 20210524
  Transmission Date: 20210716
  Serious: Yes (Death, Hospitalization, Other)
  Sender: FDA-Public Use
  Company Number: TW-INCYTE CORPORATION-2018IN004378

PATIENT

DRUGS (21)
  1. JAKAVI [Suspect]
     Active Substance: RUXOLITINIB
     Dosage: 20 MG, BID
     Route: 048
     Dates: start: 20180813, end: 20180819
  2. BUSCOPAN [Concomitant]
     Active Substance: BUTYLSCOPOLAMINE BROMIDE
     Indication: PANENDOSCOPY
     Dosage: 20 MG
     Route: 030
     Dates: start: 20180412, end: 20180412
  3. JAKAVI [Suspect]
     Active Substance: RUXOLITINIB
     Dosage: 30 MG
     Route: 048
     Dates: start: 20180112, end: 20180620
  4. ACYCLOVIR [ACICLOVIR] [Concomitant]
     Active Substance: ACYCLOVIR
     Indication: HERPES ZOSTER
     Dosage: 1 APPLY
     Route: 061
     Dates: start: 20180621, end: 20180808
  5. JAKAVI [Suspect]
     Active Substance: RUXOLITINIB
     Indication: MYELOFIBROSIS
     Dosage: 10 MG, BID
     Route: 048
     Dates: start: 20170511, end: 20170525
  6. ALPRALINE [Concomitant]
     Active Substance: ALPRAZOLAM
     Indication: INSOMNIA
     Dosage: 0.5 MG, UNK
     Route: 048
     Dates: start: 20170511, end: 20171115
  7. DIPHENHYDRAMINE HCL [Concomitant]
     Active Substance: DIPHENHYDRAMINE HYDROCHLORIDE
     Indication: PROPHYLAXIS
     Dosage: 30 MG, UNK
     Route: 042
     Dates: start: 20180404, end: 20180406
  8. ALPRALINE [Concomitant]
     Active Substance: ALPRAZOLAM
     Dosage: 0.25 MG
     Route: 048
     Dates: start: 20180302, end: 20180808
  9. DIPHENHYDRAMINE HCL [Concomitant]
     Active Substance: DIPHENHYDRAMINE HYDROCHLORIDE
     Dosage: 30 MG
     Route: 042
     Dates: start: 20180111, end: 20180111
  10. HYDREA [Concomitant]
     Active Substance: HYDROXYUREA
     Indication: MYELOFIBROSIS
     Dosage: 500 MG
     Route: 048
     Dates: start: 20170629, end: 20180810
  11. NORVASC [Concomitant]
     Active Substance: AMLODIPINE BESYLATE
     Indication: HYPERTENSION
     Dosage: 5 MG
     Route: 048
     Dates: start: 20170728, end: 20180815
  12. JAKAVI [Suspect]
     Active Substance: RUXOLITINIB
     Dosage: 20 MG
     Route: 048
     Dates: start: 20170526, end: 20180111
  13. JAKAVI [Suspect]
     Active Substance: RUXOLITINIB
     Dosage: 20 MG, BID
     Route: 048
     Dates: end: 20180803
  14. ACETAMINOPHEN W/CODEINE PHOSPHATE [Concomitant]
     Active Substance: ACETAMINOPHEN\CODEINE PHOSPHATE
     Indication: PRODUCT USED FOR UNKNOWN INDICATION
     Dosage: UNK
     Route: 065
     Dates: start: 20180315, end: 20180521
  15. CEFTIBUTEN. [Concomitant]
     Active Substance: CEFTIBUTEN
     Indication: PROPHYLAXIS
     Dosage: 200 MG, UNK
     Route: 048
     Dates: start: 20180407, end: 20180410
  16. MAGNESIUM OXIDE. [Concomitant]
     Active Substance: MAGNESIUM OXIDE
     Indication: CONSTIPATION PROPHYLAXIS
     Dosage: 250 MG
     Route: 048
     Dates: start: 20180409, end: 20180416
  17. FEBURIC [Concomitant]
     Active Substance: FEBUXOSTAT
     Indication: PROPHYLAXIS
     Dosage: 40 MG
     Route: 048
     Dates: start: 20180621, end: 20180815
  18. BETAMETHASONE VALERATE. [Concomitant]
     Active Substance: BETAMETHASONE VALERATE
     Indication: PROPHYLAXIS
     Dosage: 1 OT, UNK
     Route: 061
     Dates: start: 20180405, end: 20180406
  19. FUSIDIC ACID [Concomitant]
     Active Substance: FUSIDIC ACID
     Indication: HERPES ZOSTER
     Dosage: 1 APPLY
     Route: 061
     Dates: start: 20180621, end: 20200820
  20. DIPHENHYDRAMINE HCL [Concomitant]
     Active Substance: DIPHENHYDRAMINE HYDROCHLORIDE
     Dosage: 30 MG
     Route: 042
     Dates: start: 20170425, end: 20170425
  21. XYZAL [Concomitant]
     Active Substance: LEVOCETIRIZINE DIHYDROCHLORIDE
     Indication: MYELOFIBROSIS
     Dosage: 2.5 MG
     Route: 048
     Dates: start: 20170511, end: 20180809

REACTIONS (30)
  - Hyperkalaemia [Recovered/Resolved]
  - Middle lobe syndrome [Fatal]
  - Upper respiratory tract infection [Recovered/Resolved]
  - Erythema [Fatal]
  - Platelet count increased [Unknown]
  - Swelling face [Fatal]
  - Rotator cuff syndrome [Recovered/Resolved]
  - Pyrexia [Fatal]
  - Candida infection [Unknown]
  - Loss of consciousness [Fatal]
  - Pyrexia [Recovered/Resolved]
  - Multiple organ dysfunction syndrome [Fatal]
  - Faeces discoloured [Recovering/Resolving]
  - Haematocrit decreased [Unknown]
  - Mouth ulceration [Fatal]
  - Red blood cell count decreased [Unknown]
  - Chronic gastritis [Unknown]
  - Haemorrhoids [Recovered/Resolved]
  - Pneumonia [Fatal]
  - Septic shock [Fatal]
  - Cough [Fatal]
  - Cellulitis [Fatal]
  - Feeling cold [Fatal]
  - Haemoglobin decreased [Unknown]
  - Rhinorrhoea [Fatal]
  - Upper gastrointestinal haemorrhage [Recovered/Resolved]
  - White blood cell count increased [Unknown]
  - Neutrophil count increased [Unknown]
  - Chalazion [Unknown]
  - Gastrooesophageal reflux disease [Recovering/Resolving]

NARRATIVE: CASE EVENT DATE: 20170524
